FAERS Safety Report 4300748-3 (Version None)
Quarter: 2004Q1

REPORT INFORMATION
  Report Type: 
  Country: None (occurrence: None)
  Receive Date: 20040220
  Receipt Date: 20040220
  Transmission Date: 20041129
  Serious: No
  Sender: FDA-Public Use
  Company Number: None

PATIENT
  Age: 45 Year
  Sex: Male
  Weight: 74.2 kg

DRUGS (1)
  1. GAMMAR-P I.V. [Suspect]
     Indication: BONE MARROW TRANSPLANT
     Dosage: 20 GM QW CONT. INFUSION
     Dates: start: 20031229

REACTIONS (4)
  - COUGH [None]
  - DIZZINESS [None]
  - DYSPNOEA [None]
  - FLUSHING [None]
